FAERS Safety Report 6070245-6 (Version None)
Quarter: 2009Q1

REPORT INFORMATION
  Report Type: 
  Country: None (occurrence: None)
  Receive Date: 20090209
  Receipt Date: 20090128
  Transmission Date: 20090719
  Serious: Yes (Other)
  Sender: FDA-Public Use
  Company Number: US-ROCHE-611181

PATIENT
  Age: 62 Year
  Sex: Female

DRUGS (5)
  1. BONIVA [Suspect]
     Indication: DRUG USE FOR UNKNOWN INDICATION
     Route: 048
     Dates: start: 20060601
  2. OXYCONTIN [Concomitant]
     Dates: start: 20020101
  3. LEVOTHROID [Concomitant]
  4. CALCIUM [Concomitant]
  5. LEXAPRO [Concomitant]

REACTIONS (3)
  - FALL [None]
  - UPPER LIMB FRACTURE [None]
  - VOMITING [None]
